FAERS Safety Report 15064972 (Version 4)
Quarter: 2018Q3

REPORT INFORMATION
  Report Type: Report from Study
  Country: LV (occurrence: LV)
  Receive Date: 20180626
  Receipt Date: 20180815
  Transmission Date: 20181010
  Serious: Yes (Life-Threatening, Hospitalization)
  Sender: FDA-Public Use
  Company Number: LV-ROCHE-2131239

PATIENT
  Age: 63 Year
  Sex: Male
  Weight: 63.7 kg

DRUGS (28)
  1. CARBOPLATIN. [Suspect]
     Active Substance: CARBOPLATIN
     Indication: SMALL CELL LUNG CANCER
     Dosage: DAY 1 OF EACH 21?DAY CYCLE USING THE CALVERT FORMULA WITH A TARGET AUC = 5 MILLIGRAMS PER MILLILITER
     Route: 042
     Dates: start: 20180206
  2. PARACETAMOL [Concomitant]
     Active Substance: ACETAMINOPHEN
     Route: 048
     Dates: start: 20180205
  3. TELMISARTAN. [Concomitant]
     Active Substance: TELMISARTAN
     Route: 048
     Dates: start: 20180528
  4. CARBOPLATIN. [Suspect]
     Active Substance: CARBOPLATIN
     Dosage: DAY 1 OF EACH 21?DAY CYCLE USING THE CALVERT FORMULA WITH A TARGET AUC = 5 MILLIGRAMS PER MILLILITER
     Route: 042
     Dates: start: 20180227
  5. ALLOPURINOL. [Concomitant]
     Active Substance: ALLOPURINOL
     Route: 048
     Dates: start: 20180213
  6. ENALAPRIL [Concomitant]
     Active Substance: ENALAPRIL
     Route: 048
     Dates: start: 20180525, end: 20180525
  7. ETOPOSIDE. [Suspect]
     Active Substance: ETOPOSIDE
     Route: 042
     Dates: start: 20180413
  8. DICLOFENACUM [Concomitant]
     Route: 048
     Dates: start: 20171120, end: 20180129
  9. BISOPROLOL [Concomitant]
     Active Substance: BISOPROLOL
     Route: 048
     Dates: start: 20180209
  10. METOCLOPRAMIDE. [Concomitant]
     Active Substance: METOCLOPRAMIDE
     Route: 048
     Dates: start: 20180209, end: 20180214
  11. ATEZOLIZUMAB. [Suspect]
     Active Substance: ATEZOLIZUMAB
     Route: 042
     Dates: start: 20180523
  12. DICLOFENACUM [Concomitant]
     Route: 048
     Dates: start: 20180130
  13. DICLOFENACUM [Concomitant]
     Route: 048
     Dates: start: 20180216
  14. ALLOPURINOL. [Concomitant]
     Active Substance: ALLOPURINOL
     Route: 048
     Dates: start: 20180130, end: 20180205
  15. DICLOFENACUM [Concomitant]
     Route: 048
     Dates: start: 20180216
  16. HYDROCHLOROTHIAZIDE. [Concomitant]
     Active Substance: HYDROCHLOROTHIAZIDE
     Route: 048
     Dates: start: 20180528
  17. CARBOPLATIN. [Suspect]
     Active Substance: CARBOPLATIN
     Dosage: DAY 1 OF EACH 21?DAY CYCLE USING THE CALVERT FORMULA WITH A TARGET AUC = 5 MILLIGRAMS PER MILLILITER
     Route: 042
     Dates: start: 20180320
  18. DIHYDROCODEINE TARTRATE [Concomitant]
     Active Substance: DIHYDROCODEINE BITARTRATE
     Route: 048
     Dates: start: 20180130
  19. ATEZOLIZUMAB. [Suspect]
     Active Substance: ATEZOLIZUMAB
     Indication: SMALL CELL LUNG CANCER
     Dosage: ATEZOLIZUMAB 1200 MG WILL BE ADMINISTERED AS AN IV ON DAY 1 OF EACH 21?DAY CYCLE.?27/FEB/2018 TO 03/
     Route: 042
     Dates: start: 20180206
  20. BLINDED TRILACICLIB [Suspect]
     Active Substance: TRILACICLIB
     Indication: SMALL CELL LUNG CANCER
     Dosage: ONCE DAILY ON DAYS 1, 2 AND 3 OF EACH 21
     Route: 042
     Dates: start: 20180206
  21. BISOPROLOL [Concomitant]
     Active Substance: BISOPROLOL
     Route: 048
     Dates: start: 20171220, end: 20180208
  22. BLINDED TRILACICLIB [Suspect]
     Active Substance: TRILACICLIB
     Indication: BONE MARROW FAILURE
     Route: 042
     Dates: start: 20180413
  23. CARBOPLATIN. [Suspect]
     Active Substance: CARBOPLATIN
     Dosage: DAY 1 OF EACH 21?DAY CYCLE USING THE CALVERT FORMULA WITH A TARGET AUC = 5 MILLIGRAMS PER MILLILITER
     Route: 042
     Dates: start: 20180411
  24. ETOPOSIDE. [Suspect]
     Active Substance: ETOPOSIDE
     Indication: SMALL CELL LUNG CANCER
     Dosage: ETOPOSIDE 100 MG/M2 WILL BE ADMINISTERED IV DAILY ON DAYS 1, 2, AND 3 OF EACH 21?DAY CYCLE.?06/FEB/2
     Route: 042
     Dates: start: 20180206
  25. METOCLOPRAMIDE. [Concomitant]
     Active Substance: METOCLOPRAMIDE
     Route: 042
     Dates: start: 20180206, end: 20180208
  26. METOCLOPRAMIDE. [Concomitant]
     Active Substance: METOCLOPRAMIDE
     Route: 048
     Dates: start: 20170122, end: 20180205
  27. OMEPRAZOLUM [Concomitant]
     Route: 048
     Dates: start: 20180212
  28. ALLOPURINOL. [Concomitant]
     Active Substance: ALLOPURINOL
     Route: 048
     Dates: start: 20180206, end: 20180212

REACTIONS (1)
  - Angioedema [Recovered/Resolved]

NARRATIVE: CASE EVENT DATE: 20180526
